FAERS Safety Report 9869755 (Version 1)
Quarter: 2014Q1

REPORT INFORMATION
  Report Type: Spontaneous
  Country: AU (occurrence: None)
  Receive Date: 20140203
  Receipt Date: 20140203
  Transmission Date: 20141002
  Serious: Yes (Other)
  Sender: FDA-Public Use
  Company Number: 2014P1000575

PATIENT
  Age: 8 Year
  Sex: Female

DRUGS (1)
  1. ZOLEDRONIC ACID INJECTION [Suspect]
     Indication: OSTEOGENESIS IMPERFECTA
     Route: 042

REACTIONS (3)
  - Fall [None]
  - Radius fracture [None]
  - Bone density abnormal [None]
